FAERS Safety Report 6136571-7 (Version None)
Quarter: 2009Q1

REPORT INFORMATION
  Report Type: 
  Country: None (occurrence: None)
  Receive Date: 20090330
  Receipt Date: 20090319
  Transmission Date: 20090719
  Serious: Yes (Other)
  Sender: FDA-Public Use
  Company Number: B0565722A

PATIENT
  Age: 44 Year
  Sex: Male
  Weight: 88 kg

DRUGS (3)
  1. NIQUITIN [Suspect]
     Route: 062
     Dates: start: 20090304, end: 20090305
  2. NYTOL HERBAL [Concomitant]
     Route: 065
  3. DIPHENHYDRAMINE HYDROCHLORIDE [Concomitant]
     Route: 065

REACTIONS (1)
  - OEDEMA PERIPHERAL [None]
